FAERS Safety Report 9611555 (Version 1)
Quarter: 2013Q4

REPORT INFORMATION
  Report Type: Spontaneous
  Country: US (occurrence: US)
  Receive Date: 20131010
  Receipt Date: 20131010
  Transmission Date: 20140711
  Serious: Yes (Other)
  Sender: FDA-Public Use
  Company Number: PHEH2013US020885

PATIENT
  Sex: Female

DRUGS (1)
  1. VIVELLE DOT [Suspect]
     Dosage: UNK UKN, UNK
     Route: 062

REACTIONS (2)
  - Diabetes mellitus [Unknown]
  - Injection site mass [Unknown]
